FAERS Safety Report 23548773 (Version 1)
Quarter: 2024Q1

REPORT INFORMATION
  Report Type: Spontaneous
  Country: US (occurrence: None)
  Receive Date: 20240220
  Receipt Date: 20240220
  Transmission Date: 20240410
  Serious: No
  Sender: FDA-Public Use
  Company Number: None

PATIENT
  Sex: Female

DRUGS (2)
  1. GLASSIA [Suspect]
     Active Substance: .ALPHA.1-PROTEINASE INHIBITOR HUMAN
     Indication: Alpha-1 antitrypsin deficiency
     Dosage: STRENGHT: 1000?FREQUENCY : WEEKLY;?
     Route: 042
     Dates: start: 202208
  2. EPINEPI-RINE AUTO-INJ [Concomitant]

REACTIONS (1)
  - Dyspnoea [None]
